FAERS Safety Report 6081735-4 (Version None)
Quarter: 2009Q1

REPORT INFORMATION
  Report Type: 
  Country: None (occurrence: None)
  Receive Date: 20090126
  Receipt Date: 20080701
  Transmission Date: 20090719
  Serious: Yes (Hospitalization)
  Sender: FDA-Public Use
  Company Number: WAES 0807USA00637

PATIENT
  Sex: Male

DRUGS (2)
  1. INVANZ [Suspect]
     Indication: PLEURAL INFECTION BACTERIAL
     Dosage: IV
     Route: 042
     Dates: end: 20080526
  2. [THERAPY UNSPECIFIED] [Concomitant]

REACTIONS (1)
  - CONVULSION [None]
